FAERS Safety Report 16268825 (Version 1)
Quarter: 2019Q2

REPORT INFORMATION
  Report Type: Spontaneous
  Country: US (occurrence: US)
  Receive Date: 20190328
  Receipt Date: 20190328
  Transmission Date: 20190711
  Serious: No
  Sender: FDA-Public Use
  Company Number: None

PATIENT
  Age: 80 Year
  Sex: Female

DRUGS (1)
  1. ACTEMRA [Suspect]
     Active Substance: TOCILIZUMAB
     Indication: ARTERITIS
     Route: 058
     Dates: start: 201801

REACTIONS (4)
  - Dizziness [None]
  - Vertigo [None]
  - Vestibular disorder [None]
  - Red blood cell sedimentation rate increased [None]
